FAERS Safety Report 8798664 (Version 1)
Quarter: 2012Q4

REPORT INFORMATION
  Report Type: Spontaneous
  Country: US (occurrence: None)
  Receive Date: 20120917
  Receipt Date: 20120917
  Transmission Date: 20130627
  Serious: No
  Sender: FDA-Public Use
  Company Number: None

PATIENT
  Age: 37 Year
  Sex: Female
  Weight: 54.89 kg

DRUGS (1)
  1. MIRENA [Suspect]
     Indication: CONTRACEPTION
     Dates: start: 20120328, end: 20120801

REACTIONS (9)
  - Mood swings [None]
  - Fatigue [None]
  - Agitation [None]
  - Hypoaesthesia [None]
  - Dizziness [None]
  - Nausea [None]
  - Blood pressure increased [None]
  - Amnesia [None]
  - Feeling abnormal [None]
